FAERS Safety Report 16421865 (Version 3)
Quarter: 2019Q3

REPORT INFORMATION
  Report Type: Other
  Country: US (occurrence: US)
  Receive Date: 20190612
  Receipt Date: 20190715
  Transmission Date: 20191004
  Serious: No
  Sender: FDA-Public Use
  Company Number: US-AMAG PHARMACEUTICALS, INC.-AMAG201902623

PATIENT
  Age: 38 Year
  Sex: Female
  Weight: 112.14 kg

DRUGS (2)
  1. MAKENA [Suspect]
     Active Substance: HYDROXYPROGESTERONE CAPROATE
     Indication: PREMATURE DELIVERY
     Dosage: 275 MG/1.1 ML
     Route: 058
     Dates: start: 20190429, end: 20190520
  2. PRENATAL VITAMIN [Concomitant]
     Active Substance: VITAMINS
     Indication: PREGNANCY
     Dosage: QD
     Route: 048
     Dates: start: 201901

REACTIONS (4)
  - Injection site pain [Not Recovered/Not Resolved]
  - Emotional distress [Recovered/Resolved]
  - Injection site swelling [Not Recovered/Not Resolved]
  - Contusion [Unknown]

NARRATIVE: CASE EVENT DATE: 20190506
